FAERS Safety Report 9016434 (Version 2)
Quarter: 2013Q1

REPORT INFORMATION
  Report Type: Report from Study
  Country: DE (occurrence: DE)
  Receive Date: 20130116
  Receipt Date: 20130121
  Transmission Date: 20140127
  Serious: Yes (Hospitalization)
  Sender: FDA-Public Use
  Company Number: DE-GLAXOSMITHKLINE-B0857348A

PATIENT
  Sex: Female
  Weight: 48 kg

DRUGS (2)
  1. TOPOTECAN [Suspect]
     Indication: OVARIAN CANCER RECURRENT
     Route: 042
  2. BLINDED STUDY MEDICATION [Suspect]
     Indication: OVARIAN CANCER RECURRENT
     Route: 048

REACTIONS (3)
  - Flank pain [Recovered/Resolved]
  - Condition aggravated [Recovered/Resolved]
  - Urinary retention [Recovered/Resolved]
